FAERS Safety Report 20025013 (Version 2)
Quarter: 2021Q4

REPORT INFORMATION
  Report Type: Report from Study
  Country: JP (occurrence: JP)
  Receive Date: 20211102
  Receipt Date: 20211105
  Transmission Date: 20220303
  Serious: Yes (Hospitalization)
  Sender: FDA-Public Use
  Company Number: JP-BRISTOL-MYERS SQUIBB COMPANY-BMS-2021-097956

PATIENT
  Age: 73 Year
  Sex: Male

DRUGS (10)
  1. NIVOLUMAB [Suspect]
     Active Substance: NIVOLUMAB
     Indication: Non-small cell lung cancer recurrent
     Dosage: 360 MILLIGRAM, ONE TIME DOSE
     Route: 041
     Dates: start: 20210408, end: 20210408
  2. NIVOLUMAB [Suspect]
     Active Substance: NIVOLUMAB
     Dosage: 360 MILLIGRAM, ONE TIME DOSE
     Route: 041
     Dates: start: 20210506, end: 20210506
  3. NIVOLUMAB [Suspect]
     Active Substance: NIVOLUMAB
     Dosage: 360 MILLIGRAM, ONE TIME DOSE
     Route: 041
     Dates: start: 20210610, end: 20210610
  4. NIVOLUMAB [Suspect]
     Active Substance: NIVOLUMAB
     Dosage: 360 MILLIGRAM, ONE TIME DOSE
     Route: 041
     Dates: start: 20210701, end: 20210701
  5. NIVOLUMAB [Suspect]
     Active Substance: NIVOLUMAB
     Dosage: 360 MILLIGRAM, ONE TIME DOSE
     Route: 041
     Dates: start: 20210727, end: 20210727
  6. NIVOLUMAB [Suspect]
     Active Substance: NIVOLUMAB
     Dosage: 360 MILLIGRAM, ONE TIME DOSE
     Route: 041
     Dates: start: 20210817, end: 20210817
  7. IPILIMUMAB [Suspect]
     Active Substance: IPILIMUMAB
     Indication: Non-small cell lung cancer recurrent
     Dosage: 80 MILLIGRAM, ONE TIME DOSE
     Route: 041
     Dates: start: 20210408, end: 20210408
  8. IPILIMUMAB [Suspect]
     Active Substance: IPILIMUMAB
     Dosage: 80 MILLIGRAM, ONE TIME DOSE
     Route: 041
     Dates: start: 20210506, end: 20210506
  9. IPILIMUMAB [Suspect]
     Active Substance: IPILIMUMAB
     Dosage: 80 MILLIGRAM, ONE TIME DOSE
     Route: 041
     Dates: start: 20210610, end: 20210610
  10. IPILIMUMAB [Suspect]
     Active Substance: IPILIMUMAB
     Dosage: 80 MILLIGRAM, ONE TIME DOSE
     Route: 041
     Dates: start: 20210727, end: 20210727

REACTIONS (1)
  - Hypopituitarism [Recovered/Resolved]

NARRATIVE: CASE EVENT DATE: 20210910
